FAERS Safety Report 5566405-0 (Version None)
Quarter: 2007Q4

REPORT INFORMATION
  Report Type: 
  Country: None (occurrence: None)
  Receive Date: 20071217
  Receipt Date: 20071217
  Transmission Date: 20080405
  Serious: Yes (Hospitalization)
  Sender: FDA-Public Use
  Company Number: None

PATIENT
  Sex: Female
  Weight: 77.27 kg

DRUGS (2)
  1. FLUOROURACIL [Suspect]
     Dosage: 14120 MG
  2. MITOMYCIN [Suspect]
     Dosage: 35.3 MG

REACTIONS (8)
  - ANAEMIA [None]
  - CONSTIPATION [None]
  - DYSURIA [None]
  - FEBRILE NEUTROPENIA [None]
  - PERINEAL PAIN [None]
  - PROCTALGIA [None]
  - STOMATITIS [None]
  - THROMBOCYTOPENIA [None]
